FAERS Safety Report 9325627 (Version 1)
Quarter: 2013Q2

REPORT INFORMATION
  Report Type: Spontaneous
  Country: DE (occurrence: DE)
  Receive Date: 20130604
  Receipt Date: 20130604
  Transmission Date: 20140414
  Serious: Yes (Other)
  Sender: FDA-Public Use
  Company Number: DE-ROCHE-1216965

PATIENT
  Sex: Female
  Weight: 67 kg

DRUGS (3)
  1. HERCEPTIN [Suspect]
     Indication: PRODUCT USED FOR UNKNOWN INDICATION
     Route: 042
     Dates: start: 20130416
  2. PARACETAMOL [Concomitant]
     Route: 048
  3. SOLU-DACORTIN [Concomitant]
     Route: 042
     Dates: start: 20130416

REACTIONS (2)
  - Eye pruritus [Recovering/Resolving]
  - Breast discomfort [Recovering/Resolving]
